FAERS Safety Report 5026808-X (Version None)
Quarter: 2006Q2

REPORT INFORMATION
  Report Type: 
  Country: None (occurrence: None)
  Receive Date: 20060615
  Receipt Date: 20060417
  Transmission Date: 20061013
  Serious: Yes (Other)
  Sender: FDA-Public Use
  Company Number: 2006UW06797

PATIENT
  Age: 55 Year
  Sex: Female
  Weight: 72.6 kg

DRUGS (4)
  1. SEROQUEL [Suspect]
     Indication: SCHIZOAFFECTIVE DISORDER
     Route: 048
     Dates: start: 20000101, end: 20060603
  2. SEROQUEL [Suspect]
     Dosage: DOSE INCREASED
     Route: 048
  3. KLONOPIN [Concomitant]
     Route: 048
  4. PROTONIX [Concomitant]
     Route: 048

REACTIONS (4)
  - ANXIETY [None]
  - BLOOD GLUCOSE INCREASED [None]
  - PANCREATIC ATROPHY [None]
  - WEIGHT INCREASED [None]
